FAERS Safety Report 22322081 (Version 1)
Quarter: 2023Q2

REPORT INFORMATION
  Report Type: Spontaneous
  Country: US (occurrence: None)
  Receive Date: 20230516
  Receipt Date: 20230516
  Transmission Date: 20230722
  Serious: No
  Sender: FDA-Public Use
  Company Number: US-Hikma Pharmaceuticals USA Inc.-US-H14001-22-01842

PATIENT
  Sex: Female

DRUGS (1)
  1. PREDNISONE [Suspect]
     Active Substance: PREDNISONE
     Indication: Product used for unknown indication
     Dosage: UNKNOWN
     Route: 065

REACTIONS (15)
  - Morbid thoughts [Unknown]
  - Peripheral swelling [Unknown]
  - Photosensitivity reaction [Unknown]
  - Fatigue [Unknown]
  - Alopecia [Unknown]
  - Onychomadesis [Unknown]
  - Butterfly rash [Unknown]
  - Arthritis [Unknown]
  - Amnesia [Unknown]
  - Organ failure [Unknown]
  - Rash [Unknown]
  - Impaired healing [Unknown]
  - Depression [Unknown]
  - Brain fog [Unknown]
  - Malaise [Unknown]
